FAERS Safety Report 9873987 (Version 2)
Quarter: 2014Q1

REPORT INFORMATION
  Report Type: Other
  Country: US (occurrence: US)
  Receive Date: 20140206
  Receipt Date: 20140206
  Transmission Date: 20141002
  Serious: No
  Sender: FDA-Public Use
  Company Number: US-ACORDA-ACO_34798_2013

PATIENT
  Age: 37 Year
  Sex: Male
  Weight: 82.54 kg

DRUGS (3)
  1. AMPYRA [Suspect]
     Indication: GAIT DISTURBANCE
     Dosage: 10 MG, BID
     Route: 048
     Dates: start: 20130102
  2. TYSABRI [Concomitant]
     Indication: MULTIPLE SCLEROSIS
     Dosage: 300, Q 30 DAYS
     Route: 042
     Dates: start: 20130304
  3. DOXEPIN HCL [Concomitant]
     Indication: MIGRAINE
     Dosage: 10 MG, QD
     Route: 048
     Dates: start: 20130304

REACTIONS (1)
  - Dysuria [Recovered/Resolved]
